FAERS Safety Report 9185871 (Version 2)
Quarter: 2013Q2

REPORT INFORMATION
  Report Type: Report from Study
  Country: FR (occurrence: FR)
  Receive Date: 20130325
  Receipt Date: 20130412
  Transmission Date: 20140414
  Serious: Yes (Hospitalization, Other)
  Sender: FDA-Public Use
  Company Number: FR-PFIZER INC-2013088641

PATIENT
  Age: 68 Year
  Sex: Male

DRUGS (4)
  1. TORISEL [Suspect]
     Indication: MANTLE CELL LYMPHOMA
     Dosage: 175 MG, WEEKLY
     Route: 042
     Dates: start: 20110708, end: 20110722
  2. TORISEL [Suspect]
     Dosage: 75 MG, WEEKLY
     Route: 042
     Dates: start: 20110727, end: 20110727
  3. TORISEL [Suspect]
     Dosage: 50 MG, WEEKLY
     Route: 042
     Dates: start: 20110804, end: 20110922
  4. TORISEL [Suspect]
     Dosage: 25 MG, WEEKLY
     Route: 042
     Dates: start: 20111007, end: 20111007

REACTIONS (6)
  - Sepsis [Recovered/Resolved]
  - Mucosal inflammation [Unknown]
  - Aphthous stomatitis [Unknown]
  - Bronchitis [Recovered/Resolved]
  - Asthenia [Recovered/Resolved]
  - Paronychia [Recovered/Resolved]
